FAERS Safety Report 5398011-5 (Version None)
Quarter: 2007Q3

REPORT INFORMATION
  Report Type: 
  Country: None (occurrence: None)
  Receive Date: 20070726
  Receipt Date: 20070719
  Transmission Date: 20080115
  Serious: Yes (Death)
  Sender: FDA-Public Use
  Company Number: HQWYE155120JUL07

PATIENT
  Sex: Female

DRUGS (1)
  1. PROTONIX [Suspect]
     Route: 048

REACTIONS (1)
  - DEATH [None]
